FAERS Safety Report 5016209-2 (Version None)
Quarter: 2006Q2

REPORT INFORMATION
  Report Type: 
  Country: None (occurrence: None)
  Receive Date: 20060414
  Receipt Date: 20060124
  Transmission Date: 20061013
  Serious: No
  Sender: FDA-Public Use
  Company Number: 2006SP000428

PATIENT
  Age: 49 Year
  Sex: Female
  Weight: 58.0604 kg

DRUGS (4)
  1. LUNESTA [Suspect]
     Dosage: 3 MG; 1 MG
     Dates: start: 20051101
  2. LUNESTA [Suspect]
     Dosage: 3 MG; 1 MG
     Dates: start: 20060101
  3. THYROID TAB [Concomitant]
  4. DARVOCET [Concomitant]

REACTIONS (2)
  - EAR INFECTION [None]
  - TINNITUS [None]
